FAERS Safety Report 18986906 (Version 1)
Quarter: 2021Q1

REPORT INFORMATION
  Report Type: Report from Study
  Country: CA (occurrence: CA)
  Receive Date: 20210309
  Receipt Date: 20210309
  Transmission Date: 20210420
  Serious: Yes (Other)
  Sender: FDA-Public Use
  Company Number: CA-IPSEN BIOPHARMACEUTICALS, INC.-2021-05807

PATIENT
  Age: 70 Year
  Sex: Female

DRUGS (7)
  1. ESCITALOPRAM [Concomitant]
     Active Substance: ESCITALOPRAM OXALATE
  2. VITAMIN D [Concomitant]
     Active Substance: VITAMIN D NOS
  3. SOMATULINE AUTOGEL [Suspect]
     Active Substance: LANREOTIDE ACETATE
     Indication: NEUROENDOCRINE TUMOUR
     Route: 058
     Dates: start: 20191113
  4. AMLODIPINE [Concomitant]
     Active Substance: AMLODIPINE BESYLATE
  5. CALCIUM [Concomitant]
     Active Substance: CALCIUM
  6. ZOPICLONE [Concomitant]
     Active Substance: ZOPICLONE
  7. OCTREOTIDE. [Concomitant]
     Active Substance: OCTREOTIDE
     Dosage: X14 DAYS

REACTIONS (2)
  - Neoplasm progression [Not Recovered/Not Resolved]
  - Liver scan abnormal [Unknown]

NARRATIVE: CASE EVENT DATE: 202102
